FAERS Safety Report 9516589 (Version 1)
Quarter: 2013Q1

REPORT INFORMATION
  Report Type: Spontaneous
  Country: US (occurrence: None)
  Receive Date: 20130305
  Receipt Date: 20130305
  Transmission Date: 20140127
  Serious: Yes (Hospitalization)
  Sender: FDA-Public Use
  Company Number: 163-21880-12011366

PATIENT
  Age: 86 Year
  Sex: Female

DRUGS (6)
  1. REVLIMID (LENALIDOMIDE) (CAPSULES) [Suspect]
     Indication: PLASMA CELL MYELOMA
     Dosage: 5 MG, QD, PO
     Route: 048
     Dates: start: 20110512
  2. PREDNISONE (PREDNISONE) (UNKNOWN) [Concomitant]
  3. TENORMIN (ATENOLOL) (UNKNOWN) [Concomitant]
  4. LASIX (FUROSEMIDE) (UNKNOWN) [Concomitant]
  5. PROAIR (FLUTICASONE PROPIONATE) (UNKNOWN) [Concomitant]
  6. ALENDRONATE (ALENDRONATE SODIUM) (UNKNOWN) [Concomitant]

REACTIONS (6)
  - Pancytopenia [None]
  - Bronchitis [None]
  - Fatigue [None]
  - Neutropenia [None]
  - Respiratory tract infection [None]
  - Rash [None]
